FAERS Safety Report 4628887-8 (Version None)
Quarter: 2005Q2

REPORT INFORMATION
  Report Type: 
  Country: None (occurrence: None)
  Receive Date: 20050406
  Receipt Date: 20050325
  Transmission Date: 20051028
  Serious: Yes (Other)
  Sender: FDA-Public Use
  Company Number: 26434

PATIENT
  Age: 76 Year
  Sex: Female

DRUGS (3)
  1. ALDARA [Suspect]
     Indication: ACTINIC KERATOSIS
     Dosage: (1 SACHET, 3 IN 1 WEEK (S), TOPICAL
     Route: 061
     Dates: start: 20050122, end: 20050214
  2. SYNTHROID [Concomitant]
  3. ASPIRIN [Concomitant]

REACTIONS (5)
  - ACCIDENTAL EXPOSURE [None]
  - APPLICATION SITE DESQUAMATION [None]
  - APPLICATION SITE ERYTHEMA [None]
  - APPLICATION SITE PRURITUS [None]
  - BLINDNESS TRANSIENT [None]
